FAERS Safety Report 8208990-6 (Version None)
Quarter: 2012Q1

REPORT INFORMATION
  Report Type: 
  Country: None (occurrence: None)
  Receive Date: 20120314
  Receipt Date: 20120313
  Transmission Date: 20120608
  Serious: Yes (Other)
  Sender: FDA-Public Use
  Company Number: DE-ROCHE-1048363

PATIENT
  Sex: Male

DRUGS (2)
  1. MABTHERA [Suspect]
     Indication: MANTLE CELL LYMPHOMA
  2. BENDAMUSTINE [Concomitant]
     Indication: MANTLE CELL LYMPHOMA

REACTIONS (2)
  - HEPATITIS B [None]
  - ACUTE HEPATIC FAILURE [None]
